FAERS Safety Report 11836291 (Version 1)
Quarter: 2015Q4

REPORT INFORMATION
  Report Type: Spontaneous
  Country: EG (occurrence: EG)
  Receive Date: 20151215
  Receipt Date: 20151215
  Transmission Date: 20160305
  Serious: Yes (Other)
  Sender: FDA-Public Use
  Company Number: EG-SA-2015SA209749

PATIENT
  Age: 64 Year
  Sex: Male

DRUGS (4)
  1. LIPITOR [Concomitant]
     Active Substance: ATORVASTATIN CALCIUM
  2. CONCOR [Concomitant]
     Active Substance: BISOPROLOL FUMARATE
  3. PROCORALAN [Concomitant]
     Active Substance: IVABRADINE
  4. RENAGEL [Suspect]
     Active Substance: SEVELAMER HYDROCHLORIDE
     Indication: HYPERPHOSPHATAEMIA
     Dosage: DOSE AND FREQUENCY: 1X3
     Route: 065

REACTIONS (3)
  - Blood bilirubin increased [Unknown]
  - Myocardial ischaemia [Unknown]
  - Jaundice [Unknown]
